FAERS Safety Report 8962949 (Version 5)
Quarter: 2013Q4

REPORT INFORMATION
  Report Type: Spontaneous
  Country: US (occurrence: US)
  Receive Date: 20121213
  Receipt Date: 20131218
  Transmission Date: 20140711
  Serious: Yes (Hospitalization, Disabling)
  Sender: FDA-Public Use
  Company Number: US-009507513-1212USA003601

PATIENT
  Sex: Female
  Weight: 47.62 kg

DRUGS (3)
  1. NUVARING [Suspect]
     Indication: CONTRACEPTION
     Dosage: UNK
     Route: 067
     Dates: start: 20091025, end: 20101124
  2. NUVARING [Suspect]
     Indication: OVARIAN CYST
  3. NUVARING [Suspect]
     Indication: MENSTRUATION IRREGULAR

REACTIONS (7)
  - Deep vein thrombosis [Unknown]
  - Varicose vein [Unknown]
  - Off label use [Unknown]
  - Off label use [Unknown]
  - Upper limb fracture [Unknown]
  - Joint injury [Unknown]
  - International normalised ratio increased [Unknown]
